FAERS Safety Report 18366671 (Version 2)
Quarter: 2020Q4

REPORT INFORMATION
  Report Type: Spontaneous
  Country: US (occurrence: US)
  Receive Date: 20201009
  Receipt Date: 20201124
  Transmission Date: 20210114
  Serious: No
  Sender: FDA-Public Use
  Company Number: US-009507513-2010USA002505

PATIENT
  Age: 31 Year
  Sex: Female
  Weight: 106.58 kg

DRUGS (1)
  1. NEXPLANON [Suspect]
     Active Substance: ETONOGESTREL
     Indication: CONTRACEPTION
     Dosage: 1 IMPLANT
     Route: 059
     Dates: start: 201510, end: 20200929

REACTIONS (8)
  - Adverse event [Unknown]
  - Incorrect product administration duration [Unknown]
  - Amenorrhoea [Recovering/Resolving]
  - Complication of device removal [Recovered/Resolved]
  - Device breakage [Recovered/Resolved]
  - Device issue [Recovered/Resolved]
  - Complication of device removal [Recovered/Resolved]
  - Implant site scar [Recovering/Resolving]

NARRATIVE: CASE EVENT DATE: 201810
